FAERS Safety Report 9280167 (Version 3)
Quarter: 2013Q2

REPORT INFORMATION
  Report Type: Report from Study
  Country: US (occurrence: US)
  Receive Date: 20130509
  Receipt Date: 20130627
  Transmission Date: 20140414
  Serious: Yes (Hospitalization, Other)
  Sender: FDA-Public Use
  Company Number: US-GENZYME-US-2007-009539

PATIENT
  Age: 41 Year
  Sex: Female
  Weight: 78.9 kg

DRUGS (11)
  1. CAMPATH [Suspect]
     Indication: RELAPSING-REMITTING MULTIPLE SCLEROSIS
     Dosage: 24 MG, 1X/DX5D [FORM: AMPULE]
     Route: 042
     Dates: start: 20040322, end: 20040326
  2. CAMPATH [Suspect]
     Dosage: 24 MG, 1X/DX5D [FORM: AMPULE]
     Route: 042
     Dates: start: 20050322, end: 20050324
  3. SYNTHROID [Concomitant]
     Indication: THYROXINE THERAPY
     Dosage: 100 ?G, 1X/DAY
     Route: 048
     Dates: start: 20070213
  4. PROVIGIL [Concomitant]
     Indication: PRODUCT USED FOR UNKNOWN INDICATION
     Dosage: 100 MG, UNK
     Route: 048
  5. MIDRIN [Concomitant]
     Indication: PRODUCT USED FOR UNKNOWN INDICATION
     Dosage: UNK, AS REQ^D
     Route: 048
  6. BC POWDER [Concomitant]
     Indication: PRODUCT USED FOR UNKNOWN INDICATION
     Dosage: UNK, AS REQ^D
     Route: 048
  7. INDERAL LA [Concomitant]
     Indication: PRODUCT USED FOR UNKNOWN INDICATION
     Dosage: 80 MG QD
  8. LORAZEPAM [Concomitant]
     Indication: PRODUCT USED FOR UNKNOWN INDICATION
     Dosage: 20 MG QD
  9. PRILOSEC [Concomitant]
     Indication: PRODUCT USED FOR UNKNOWN INDICATION
     Dosage: UNK, PRN
  10. ANGIOTENSIN II ANTAGONISTS AND DIURETICS [Concomitant]
     Indication: HYPERTENSION
     Dosage: UNK
     Route: 065
  11. DIOVAN HCT [Concomitant]
     Indication: HYPERTENSION
     Dosage: UNK
     Route: 065

REACTIONS (5)
  - Papillary thyroid cancer [Recovered/Resolved]
  - Hypothyroidic goitre [Recovered/Resolved]
  - Ovarian epithelial cancer [Recovered/Resolved]
  - Endometrial adenocarcinoma [Recovered/Resolved]
  - Thyroidectomy [Recovered/Resolved]
